FAERS Safety Report 9004968 (Version 2)
Quarter: 2013Q2

REPORT INFORMATION
  Report Type: Spontaneous
  Country: US (occurrence: US)
  Receive Date: 20130109
  Receipt Date: 20130410
  Transmission Date: 20140414
  Serious: Yes (Life-Threatening, Hospitalization, Disabling)
  Sender: FDA-Public Use
  Company Number: US-BAYER-2013-001100

PATIENT
  Age: 33 Year
  Sex: Female
  Weight: 60.77 kg

DRUGS (11)
  1. YAZ [Suspect]
  2. YASMIN [Suspect]
  3. BEYAZ [Suspect]
  4. OCELLA [Suspect]
  5. LEXAPRO [Concomitant]
     Dosage: 5 MG, HS
     Route: 048
     Dates: start: 20071022
  6. TOPAMAX [Concomitant]
     Dosage: 25 MG, Q AM
     Route: 048
     Dates: start: 20071022
  7. PERCOCET [Concomitant]
     Indication: PAIN
  8. PREDNISONE [Concomitant]
  9. ANTIINFLAMMATORIES [Concomitant]
  10. HYDROCORTISONE [Concomitant]
     Indication: RASH
  11. STEROID TAPER [Concomitant]
     Indication: RASH

REACTIONS (10)
  - Deep vein thrombosis [None]
  - Injury [None]
  - Pain [None]
  - General physical health deterioration [None]
  - Deep vein thrombosis [Recovering/Resolving]
  - Pelvic venous thrombosis [Recovering/Resolving]
  - Emotional distress [None]
  - Anhedonia [None]
  - Anxiety [None]
  - Pain [None]
